FAERS Safety Report 10874774 (Version 1)
Quarter: 2015Q1

REPORT INFORMATION
  Report Type: Report from Study
  Country: US (occurrence: US)
  Receive Date: 20150227
  Receipt Date: 20150227
  Transmission Date: 20150721
  Serious: Yes (Other)
  Sender: FDA-Public Use
  Company Number: US-ABBVIE-15K-163-1350190-00

PATIENT
  Age: 25 Year
  Sex: Male
  Weight: 102.15 kg

DRUGS (4)
  1. CENTRUM VITAMIN [Concomitant]
     Indication: PRODUCT USED FOR UNKNOWN INDICATION
  2. HUMIRA [Suspect]
     Active Substance: ADALIMUMAB
     Route: 065
  3. HUMIRA [Suspect]
     Active Substance: ADALIMUMAB
     Indication: CROHN^S DISEASE
     Route: 065
     Dates: start: 20131218, end: 20131218
  4. HUMIRA [Suspect]
     Active Substance: ADALIMUMAB
     Route: 065

REACTIONS (5)
  - Anal skin tags [Recovering/Resolving]
  - Impaired healing [Not Recovered/Not Resolved]
  - Injection site pain [Unknown]
  - Protein total increased [Unknown]
  - Anal sphincter atony [Recovering/Resolving]

NARRATIVE: CASE EVENT DATE: 20140730
